FAERS Safety Report 12124861 (Version 1)
Quarter: 2016Q1

REPORT INFORMATION
  Report Type: Spontaneous
  Country: DE (occurrence: DE)
  Receive Date: 20160229
  Receipt Date: 20160229
  Transmission Date: 20160526
  Serious: Yes (Other)
  Sender: FDA-Public Use
  Company Number: DE-BEH-2015057278

PATIENT
  Age: 36 Year
  Sex: Female
  Weight: 70 kg

DRUGS (5)
  1. VIGANTOLETTEN [Concomitant]
     Active Substance: CHOLECALCIFEROL
  2. L-THYROXIN [Concomitant]
     Active Substance: LEVOTHYROXINE SODIUM
     Indication: HYPOTHYROIDISM
  3. PROGESTERONE. [Concomitant]
     Active Substance: PROGESTERONE
  4. PRIVIGEN [Suspect]
     Active Substance: HUMAN IMMUNOGLOBULIN G
     Indication: IMMUNODEFICIENCY
     Dosage: FOR YEARS
     Route: 042
     Dates: start: 20151222
  5. PRIVIGEN [Suspect]
     Active Substance: HUMAN IMMUNOGLOBULIN G
     Indication: SELECTIVE IGG SUBCLASS DEFICIENCY
     Dosage: FOR YEARS
     Route: 042
     Dates: start: 20151222

REACTIONS (9)
  - Chills [Recovered/Resolved]
  - Nausea [Recovered/Resolved]
  - Anaphylactic reaction [Recovered/Resolved]
  - Dizziness [Recovered/Resolved]
  - Peripheral circulatory failure [Recovered/Resolved]
  - Hypersensitivity [Recovered/Resolved]
  - Syncope [Recovered/Resolved]
  - Hypotension [Recovered/Resolved]
  - Livedo reticularis [Recovered/Resolved]

NARRATIVE: CASE EVENT DATE: 20151222
